FAERS Safety Report 26101783 (Version 1)
Quarter: 2025Q4

REPORT INFORMATION
  Report Type: Report from Study
  Country: CA (occurrence: CA)
  Receive Date: 20251128
  Receipt Date: 20251128
  Transmission Date: 20260118
  Serious: Yes (Other)
  Sender: ABBVIE
  Company Number: CA-ABBVIE-6559226

PATIENT
  Age: 46 Year
  Sex: Female

DRUGS (2)
  1. HUMIRA [Suspect]
     Active Substance: ADALIMUMAB
     Indication: Crohn^s disease
     Dosage: DOSE FORM: SOLUTION FOR INJECTION IN PRE-FILLED PEN, HUMIRA CITRATE FREE PEN
     Route: 058
  2. HUMIRA [Suspect]
     Active Substance: ADALIMUMAB
     Indication: Ankylosing spondylitis

REACTIONS (8)
  - Anorectal disorder [Unknown]
  - Gastrointestinal microorganism overgrowth [Unknown]
  - Anal abscess [Unknown]
  - Anal abscess [Unknown]
  - Anorectal disorder [Unknown]
  - Abdominal pain [Unknown]
  - Anal fistula [Unknown]
  - Rectal haemorrhage [Unknown]

NARRATIVE: CASE EVENT DATE: 20240101
